FAERS Safety Report 9690092 (Version 1)
Quarter: 2013Q4

REPORT INFORMATION
  Report Type: Report from Study
  Country: KR (occurrence: KR)
  Receive Date: 20131115
  Receipt Date: 20131115
  Transmission Date: 20140711
  Serious: Yes (Death)
  Sender: FDA-Public Use
  Company Number: KR-SA-2013SA114311

PATIENT
  Age: 65 Year
  Sex: Male

DRUGS (2)
  1. LANTUS [Suspect]
     Indication: DIABETES MELLITUS
     Dosage: DOSE:20 UNIT(S)
     Route: 058
  2. HUMALOG [Suspect]
     Indication: DIABETES MELLITUS
     Dosage: DOSE:10 UNIT(S)
     Route: 058

REACTIONS (1)
  - Death [Fatal]
